FAERS Safety Report 5730460-5 (Version None)
Quarter: 2008Q2

REPORT INFORMATION
  Report Type: 
  Country: None (occurrence: None)
  Receive Date: 20080507
  Receipt Date: 20080429
  Transmission Date: 20081010
  Serious: Yes (Hospitalization)
  Sender: FDA-Public Use
  Company Number: FR-ROCHE-561917

PATIENT
  Age: 42 Year
  Sex: Female

DRUGS (2)
  1. LARIAM [Suspect]
     Indication: MALARIA PROPHYLAXIS
     Route: 048
     Dates: start: 20050701, end: 20050801
  2. XANAX [Concomitant]
     Indication: ANXIETY

REACTIONS (4)
  - AREFLEXIA [None]
  - PANCREATITIS ACUTE [None]
  - PERICARDITIS [None]
  - RHABDOMYOLYSIS [None]
